FAERS Safety Report 6428705-1 (Version None)
Quarter: 2009Q4

REPORT INFORMATION
  Report Type: 
  Country: None (occurrence: None)
  Receive Date: 20091105
  Receipt Date: 20080509
  Transmission Date: 20100525
  Serious: Yes (Death, Other)
  Sender: FDA-Public Use
  Company Number: US-PFIZER INC-2008041146

PATIENT
  Age: 67 Year
  Sex: Female
  Weight: 67 kg

DRUGS (5)
  1. ATGAM [Suspect]
     Indication: APLASTIC ANAEMIA
     Route: 042
     Dates: start: 20080428
  2. CYCLOSPORINE [Concomitant]
  3. DEXAMETHASONE [Concomitant]
  4. SOLU-MEDROL [Concomitant]
  5. ESTROGENS CONJUGATED [Concomitant]

REACTIONS (2)
  - DEATH [None]
  - DRUG ADMINISTRATION ERROR [None]
